FAERS Safety Report 4570558-0 (Version None)
Quarter: 2005Q1

REPORT INFORMATION
  Report Type: 
  Country: None (occurrence: None)
  Receive Date: 20050202
  Receipt Date: 20050113
  Transmission Date: 20050727
  Serious: Yes (Other)
  Sender: FDA-Public Use
  Company Number: GBS041216169

PATIENT
  Age: 39 Year
  Sex: Female

DRUGS (2)
  1. YENTREVE (DULOXETINE HYDROCHLORIDE) [Suspect]
     Indication: URINARY INCONTINENCE
     Dosage: 40 MG/2 DAY
     Dates: start: 20041101, end: 20041101
  2. COD-LIVER OIL [Concomitant]

REACTIONS (8)
  - ANOREXIA [None]
  - DIZZINESS [None]
  - EYE ROLLING [None]
  - FEELING ABNORMAL [None]
  - HEADACHE [None]
  - MYDRIASIS [None]
  - SYNCOPE [None]
  - VOMITING [None]
